FAERS Safety Report 7431221-1 (Version None)
Quarter: 2011Q2

REPORT INFORMATION
  Report Type: 
  Country: None (occurrence: None)
  Receive Date: 20110421
  Receipt Date: 20110412
  Transmission Date: 20111010
  Serious: Yes (Hospitalization, Other)
  Sender: FDA-Public Use
  Company Number: US-MERCK-1009USA00525

PATIENT
  Age: 72 Year
  Sex: Female
  Weight: 78 kg

DRUGS (3)
  1. VITAMIN D (UNSPECIFIED) [Concomitant]
     Route: 065
  2. FOSAMAX [Suspect]
     Indication: OSTEOPENIA
     Route: 048
     Dates: start: 20050101, end: 20090101
  3. CALCIUM (UNSPECIFIED) [Concomitant]
     Route: 065

REACTIONS (24)
  - OESOPHAGEAL ADENOCARCINOMA METASTATIC [None]
  - GASTRITIS HAEMORRHAGIC [None]
  - DEHYDRATION [None]
  - TRANSIENT ISCHAEMIC ATTACK [None]
  - CLOSTRIDIUM DIFFICILE COLITIS [None]
  - NEUTROPENIA [None]
  - METASTASES TO LUNG [None]
  - VOMITING [None]
  - HAEMOGLOBIN DECREASED [None]
  - ANAEMIA [None]
  - GASTRIC VOLVULUS [None]
  - RENAL FAILURE [None]
  - GENERALISED OEDEMA [None]
  - TOXICITY TO VARIOUS AGENTS [None]
  - DECREASED APPETITE [None]
  - GLAUCOMA [None]
  - DIVERTICULUM [None]
  - ADVERSE DRUG REACTION [None]
  - DEPRESSION [None]
  - METASTASES TO STOMACH [None]
  - OESOPHAGITIS [None]
  - EMPHYSEMATOUS CHOLECYSTITIS [None]
  - ANXIETY [None]
  - NAUSEA [None]
